FAERS Safety Report 6362966 (Version 2)
Quarter: 2013Q3

REPORT INFORMATION
  Report Type: Report from Study
  Country: AU (occurrence: AU)
  Receive Date: 20070720
  Receipt Date: 20130710
  Transmission Date: 20140515
  Serious: Yes (Hospitalization)
  Sender: FDA-Public Use
  Company Number: AU-ELI_LILLY_AND_COMPANY-AU200707003130

PATIENT
  Age: 1 Year
  Sex: Female
  Weight: 7.8 kg

DRUGS (3)
  1. SOMATROPIN [Suspect]
     Indication: HYPOPITUITARISM
     Dosage: 0.68 MG, QD
     Route: 058
     Dates: start: 20060707
  2. THYROXINE [Concomitant]
     Indication: HYPOPITUITARISM
     Dosage: 50 UG, DAILY (1/D)
     Route: 048
     Dates: start: 20060702
  3. HYDROCORTISONE [Concomitant]
     Indication: HYPOPITUITARISM
     Dosage: 5 MG, DAILY (1/D)
     Route: 048
     Dates: start: 20060703

REACTIONS (1)
  - Hypoglycaemic seizure [Recovered/Resolved]
